FAERS Safety Report 4762183-3 (Version None)
Quarter: 2005Q3

REPORT INFORMATION
  Report Type: 
  Country: None (occurrence: None)
  Receive Date: 20050906
  Receipt Date: 20050906
  Transmission Date: 20060218
  Serious: Yes (Life-Threatening, Hospitalization)
  Sender: FDA-Public Use
  Company Number: None

PATIENT
  Age: 47 Year
  Sex: Female
  Weight: 104.3273 kg

DRUGS (9)
  1. REMERON [Suspect]
     Indication: DEPRESSION
     Dosage: 30 MG PO QHS
     Route: 048
  2. PROTONIX [Concomitant]
  3. NAVANE [Concomitant]
  4. ALBUTEROL./IPRATROPIUM NEBS [Concomitant]
  5. DEPAKOTE [Concomitant]
  6. LASIX [Concomitant]
  7. SPIRIVA [Concomitant]
  8. DIFLUCAN [Concomitant]
  9. REMERON [Concomitant]

REACTIONS (4)
  - ELECTROCARDIOGRAM QT PROLONGED [None]
  - MENTAL DISORDER [None]
  - REFUSAL OF TREATMENT BY PATIENT [None]
  - TORSADE DE POINTES [None]
